FAERS Safety Report 6726388-4 (Version None)
Quarter: 2010Q2

REPORT INFORMATION
  Report Type: 
  Country: None (occurrence: None)
  Receive Date: 20100514
  Receipt Date: 20100504
  Transmission Date: 20101027
  Serious: Yes (Hospitalization)
  Sender: FDA-Public Use
  Company Number: B0650934A

PATIENT
  Age: 71 Year
  Sex: Male
  Weight: 75 kg

DRUGS (3)
  1. ARIXTRA [Suspect]
     Dosage: 7.5MG PER DAY
     Route: 058
     Dates: start: 20100418
  2. AMLOR [Concomitant]
     Indication: HYPERTENSION
     Route: 065
  3. PREVISCAN [Concomitant]
     Indication: PHLEBITIS
     Route: 065
     Dates: start: 20100420

REACTIONS (2)
  - HAEMATURIA [None]
  - INCORRECT DRUG ADMINISTRATION DURATION [None]
